FAERS Safety Report 12316499 (Version 1)
Quarter: 2016Q2

REPORT INFORMATION
  Report Type: Spontaneous
  Country: JP (occurrence: JP)
  Receive Date: 20160429
  Receipt Date: 20160429
  Transmission Date: 20160815
  Serious: Yes (Hospitalization)
  Sender: FDA-Public Use
  Company Number: JP-ROCHE-1741269

PATIENT
  Age: 72 Year
  Sex: Female
  Weight: 51 kg

DRUGS (13)
  1. XELODA [Suspect]
     Active Substance: CAPECITABINE
     Indication: BREAST CANCER
     Dosage: EVERYDAY MEDICATION (HOLIDAY NONE)
     Route: 048
     Dates: start: 20160204, end: 20160209
  2. TYKERB [Concomitant]
     Active Substance: LAPATINIB DITOSYLATE
     Indication: BREAST CANCER
     Route: 048
     Dates: start: 20160106, end: 20160124
  3. UNITALC (STERILE TALC) [Concomitant]
     Active Substance: TALC
     Indication: PLEURODESIS
     Route: 065
     Dates: start: 20160109
  4. TYKERB [Concomitant]
     Active Substance: LAPATINIB DITOSYLATE
     Dosage: DOSAGE IS UNCERTAIN.
     Route: 048
  5. XELODA [Suspect]
     Active Substance: CAPECITABINE
     Indication: BREAST CANCER
     Dosage: EVERYDAY MEDICATION (HOLIDAY NONE)
     Route: 048
     Dates: start: 20160209, end: 20160217
  6. DENOTAS [Concomitant]
     Active Substance: CALCIUM CARBONATE\CHOLECALCIFEROL\MAGNESIUM CARBONATE
     Indication: HYPOCALCAEMIA
     Route: 048
     Dates: start: 20151105
  7. ALEVIATIN [Concomitant]
     Active Substance: PHENYTOIN SODIUM
     Indication: EPILEPSY
     Route: 048
  8. RANMARK [Suspect]
     Active Substance: DENOSUMAB
     Indication: PRODUCT USED FOR UNKNOWN INDICATION
     Route: 065
     Dates: start: 20151105
  9. XELODA [Suspect]
     Active Substance: CAPECITABINE
     Indication: BREAST CANCER
     Dosage: STRENGTH 300
     Route: 048
     Dates: start: 20160106, end: 20160119
  10. OLMETEC [Concomitant]
     Active Substance: OLMESARTAN MEDOXOMIL
     Indication: HYPERTENSION
     Route: 048
  11. AZULFIDINE EN-TABS [Concomitant]
     Active Substance: SULFASALAZINE
     Indication: RHEUMATOID ARTHRITIS
     Route: 048
  12. TYKERB [Concomitant]
     Active Substance: LAPATINIB DITOSYLATE
     Indication: BREAST CANCER
     Route: 048
     Dates: start: 20160204, end: 20160226
  13. TYKERB [Concomitant]
     Active Substance: LAPATINIB DITOSYLATE
     Indication: BREAST CANCER
     Route: 048
     Dates: start: 20160229, end: 20160303

REACTIONS (5)
  - Hypocalcaemia [Recovered/Resolved]
  - Ataxia [Recovering/Resolving]
  - Dyslalia [Recovering/Resolving]
  - Somnolence [Recovering/Resolving]
  - Amnesia [Recovering/Resolving]

NARRATIVE: CASE EVENT DATE: 20160208
